FAERS Safety Report 7146070-1 (Version None)
Quarter: 2010Q4

REPORT INFORMATION
  Report Type: 
  Country: None (occurrence: None)
  Receive Date: 20101123
  Receipt Date: 20101112
  Transmission Date: 20110411
  Serious: Yes (Other)
  Sender: FDA-Public Use
  Company Number: JPI-P-013009

PATIENT
  Sex: Female

DRUGS (2)
  1. XYREM [Suspect]
     Indication: SLEEP DISORDER
     Dosage: 4.5 GM (2.25 GM,2 IN 1 D),ORAL ; ORAL ; 8 GM (4 GM,2 IN 1 D),ORAL
     Route: 048
     Dates: start: 20040107
  2. XYREM [Suspect]
     Indication: SLEEP DISORDER
     Dosage: 4.5 GM (2.25 GM,2 IN 1 D),ORAL ; ORAL ; 8 GM (4 GM,2 IN 1 D),ORAL
     Route: 048
     Dates: start: 20090716

REACTIONS (2)
  - FALL [None]
  - LOWER LIMB FRACTURE [None]
